FAERS Safety Report 24417560 (Version 1)
Quarter: 2024Q4

REPORT INFORMATION
  Report Type: Report from Study
  Country: US (occurrence: US)
  Receive Date: 20241009
  Receipt Date: 20241009
  Transmission Date: 20250115
  Serious: Yes (Hospitalization, Other)
  Sender: BAYER
  Company Number: US-BAYER-2024A141352

PATIENT
  Age: 70 Year
  Sex: Male
  Weight: 99.773 kg

DRUGS (1)
  1. NUBEQA [Suspect]
     Active Substance: DAROLUTAMIDE
     Indication: Prostate cancer
     Dosage: 600 MG, BID
     Dates: start: 20240709

REACTIONS (10)
  - Dehydration [Unknown]
  - Hypotension [Unknown]
  - Blood potassium decreased [Unknown]
  - Decreased appetite [Unknown]
  - Multiple fractures [Unknown]
  - Peripheral swelling [Not Recovered/Not Resolved]
  - Dysstasia [Unknown]
  - Balance disorder [Unknown]
  - Weight decreased [Unknown]
  - Drug intolerance [Not Recovered/Not Resolved]
